FAERS Safety Report 7768615-0 (Version None)
Quarter: 2011Q3

REPORT INFORMATION
  Report Type: 
  Country: None (occurrence: None)
  Receive Date: 20110922
  Receipt Date: 20110310
  Transmission Date: 20111222
  Serious: No
  Sender: FDA-Public Use
  Company Number: US-ASTRAZENECA-2011SE06681

PATIENT
  Age: 684 Month
  Sex: Female

DRUGS (11)
  1. ASPIRIN [Concomitant]
  2. SEROQUEL [Suspect]
     Indication: BIPOLAR DISORDER
     Route: 048
     Dates: start: 20090429
  3. METFORMIN [Concomitant]
  4. PLAVIX [Concomitant]
  5. SIMVASTATIN [Concomitant]
  6. PPI [Concomitant]
  7. ZOCOR [Concomitant]
  8. ASTHMA INHALER [Concomitant]
  9. SEROQUEL [Suspect]
     Indication: DEPRESSION
     Route: 048
     Dates: start: 20090429
  10. METOPROLOL TARTRATE [Concomitant]
  11. CELEXA [Concomitant]
     Indication: DEPRESSION

REACTIONS (2)
  - EAR INFECTION [None]
  - SINUSITIS [None]
